FAERS Safety Report 23096900 (Version 1)
Quarter: 2023Q4

REPORT INFORMATION
  Report Type: Report from Study
  Country: ES (occurrence: ES)
  Receive Date: 20231023
  Receipt Date: 20231023
  Transmission Date: 20240109
  Serious: Yes (Death, Hospitalization, Other)
  Sender: FDA-Public Use
  Company Number: ES-GLAXOSMITHKLINE-ESCH2023EME050133

PATIENT

DRUGS (2)
  1. IBUPROFEN [Suspect]
     Active Substance: IBUPROFEN
     Indication: Tumour pain
     Dosage: 400 MG, BID
     Route: 048
     Dates: start: 2023, end: 20230924
  2. METAMIZOLE [Suspect]
     Active Substance: METAMIZOLE
     Indication: Tumour pain
     Dosage: 2 G, TID
     Route: 048
     Dates: start: 2023, end: 20230924

REACTIONS (4)
  - Tumour haemorrhage [Fatal]
  - Pain [Fatal]
  - Tumour compression [Fatal]
  - Lymphadenopathy [Fatal]

NARRATIVE: CASE EVENT DATE: 20230101
